FAERS Safety Report 10470850 (Version 1)
Quarter: 2014Q3

REPORT INFORMATION
  Report Type: Spontaneous
  Country: US (occurrence: None)
  Receive Date: 20140917
  Receipt Date: 20140917
  Transmission Date: 20150326
  Serious: No
  Sender: FDA-Public Use
  Company Number: 2014CT000087

PATIENT
  Age: 55 Year
  Sex: Female

DRUGS (10)
  1. ASPIRIN. [Concomitant]
     Active Substance: ASPIRIN
  2. ATROVENT [Concomitant]
     Active Substance: IPRATROPIUM BROMIDE
  3. LISINOPRIL. [Concomitant]
     Active Substance: LISINOPRIL
  4. NORVASC [Concomitant]
     Active Substance: AMLODIPINE BESYLATE
  5. CRESTOR [Concomitant]
     Active Substance: ROSUVASTATIN CALCIUM
  6. HYDROCHLOROTHIAZIDE. [Concomitant]
     Active Substance: HYDROCHLOROTHIAZIDE
  7. KORLYM [Suspect]
     Active Substance: MIFEPRISTONE
     Indication: CUSHING^S SYNDROME
     Route: 048
     Dates: start: 201311
  8. GLUCOPHAGE [Concomitant]
     Active Substance: METFORMIN HYDROCHLORIDE
  9. CALCIUM [Concomitant]
     Active Substance: CALCIUM
  10. ADVAIR HFA [Concomitant]
     Active Substance: FLUTICASONE PROPIONATE\SALMETEROL XINAFOATE

REACTIONS (2)
  - Vision blurred [None]
  - Vitreous floaters [None]

NARRATIVE: CASE EVENT DATE: 201406
